FAERS Safety Report 4320990-5 (Version None)
Quarter: 2004Q1

REPORT INFORMATION
  Report Type: 
  Country: None (occurrence: None)
  Receive Date: 20040315
  Receipt Date: 20031124
  Transmission Date: 20041129
  Serious: Yes (Life-Threatening)
  Sender: FDA-Public Use
  Company Number: PHEH2003US08272

PATIENT
  Age: 49 Year
  Sex: Female
  Weight: 70.3 kg

DRUGS (4)
  1. TRILEPTAL [Suspect]
     Indication: ANXIETY
     Dosage: 600 MG, BID, ORAL
     Route: 048
     Dates: start: 20021117
  2. ANAFRANIL [Concomitant]
  3. KLONOPIN [Concomitant]
  4. ABILIFY /USA/(ARIPIPRAZOLE) [Concomitant]

REACTIONS (1)
  - BLOOD SODIUM DECREASED [None]
